FAERS Safety Report 18198629 (Version 1)
Quarter: 2020Q3

REPORT INFORMATION
  Report Type: Spontaneous
  Country: US (occurrence: US)
  Receive Date: 20200826
  Receipt Date: 20200826
  Transmission Date: 20201103
  Serious: Yes (Death, Hospitalization)
  Sender: FDA-Public Use
  Company Number: US-MYLANLABS-2020M1074276

PATIENT
  Age: 33 Year
  Sex: Female

DRUGS (9)
  1. EPINEPHRINE. [Suspect]
     Active Substance: EPINEPHRINE
     Indication: PULSE ABSENT
     Dosage: 1 MILLIGRAM
     Route: 065
  2. EPINEPHRINE. [Suspect]
     Active Substance: EPINEPHRINE
     Dosage: 1 MILLIGRAM, RECEIVED ADDITIONAL 1MG
     Route: 065
  3. CALCIUM CHLORIDE. [Suspect]
     Active Substance: CALCIUM CHLORIDE
     Dosage: 1 GRAM, RECEIVED ADDITIONAL 1 G
     Route: 065
  4. SODIUM BICARBONATE. [Concomitant]
     Active Substance: SODIUM BICARBONATE
     Indication: PULSE ABSENT
     Dosage: 50 MILLIEQUIVALENT
     Route: 065
  5. NORMAL SALINE [Concomitant]
     Active Substance: SODIUM CHLORIDE
     Indication: PRODUCT USED FOR UNKNOWN INDICATION
     Dosage: UNK
     Route: 065
  6. INSULIN REGULAR                    /01223201/ [Concomitant]
     Active Substance: INSULIN BEEF
     Indication: PULSE ABSENT
     Dosage: 10 UNITS
     Route: 065
  7. ATROPINE. [Concomitant]
     Active Substance: ATROPINE
     Indication: HEART RATE DECREASED
     Dosage: 0.5 MILLIGRAM
     Route: 065
  8. CALCIUM CHLORIDE. [Suspect]
     Active Substance: CALCIUM CHLORIDE
     Indication: PULSE ABSENT
     Dosage: 1 GRAM
     Route: 065
  9. GLUCOSE [Concomitant]
     Active Substance: DEXTROSE
     Indication: PULSE ABSENT
     Dosage: UNK
     Route: 065

REACTIONS (1)
  - Drug ineffective [Fatal]
